FAERS Safety Report 10180389 (Version 1)
Quarter: 2014Q2

REPORT INFORMATION
  Report Type: Spontaneous
  Country: US (occurrence: US)
  Receive Date: 20140519
  Receipt Date: 20140519
  Transmission Date: 20141212
  Serious: No
  Sender: FDA-Public Use
  Company Number: US-AMGEN INC.-USASP2013082702

PATIENT
  Age: 59 Year
  Sex: Female

DRUGS (7)
  1. PROLIA [Suspect]
     Indication: PRODUCT USED FOR UNKNOWN INDICATION
     Dosage: 60 MG, UNK
     Route: 065
  2. CRESTOR [Concomitant]
     Dosage: 5 MG, UNK
  3. ACIPHEX [Concomitant]
     Dosage: 20 MG, UNK
  4. AMITRIPTYLINE [Concomitant]
  5. ALIGN [Concomitant]
  6. CALCIUM [Concomitant]
  7. VITAMIN D                          /00107901/ [Concomitant]

REACTIONS (3)
  - Dizziness [Unknown]
  - Nausea [Unknown]
  - Ear infection [Unknown]
